FAERS Safety Report 11104258 (Version 2)
Quarter: 2016Q4

REPORT INFORMATION
  Report Type: Report from Study
  Country: GB (occurrence: GB)
  Receive Date: 20150511
  Receipt Date: 20161107
  Transmission Date: 20170206
  Serious: Yes (Hospitalization)
  Sender: FDA-Public Use
  Company Number: GB-MERCK-1505GBR002476

PATIENT
  Age: 67 Year
  Sex: Female

DRUGS (2)
  1. VORINOSTAT [Suspect]
     Active Substance: VORINOSTAT
     Indication: PLASMA CELL MYELOMA
     Dosage: 300 MG, CYCLICAL, FREQUENCY  REPORTED AS PER PROTOCOL: ON DAYS 1-7 + 15-21
     Route: 048
     Dates: start: 20140603, end: 20150116
  2. LENALIDOMIDE [Suspect]
     Active Substance: LENALIDOMIDE
     Indication: PLASMA CELL MYELOMA
     Dosage: 5 MG, FREQUENCY REPORTED AS PER PROTOCOL
     Route: 048
     Dates: start: 20140603, end: 20150420

REACTIONS (1)
  - Neutropenic sepsis [Recovered/Resolved with Sequelae]

NARRATIVE: CASE EVENT DATE: 20150416
